FAERS Safety Report 17850620 (Version 1)
Quarter: 2020Q2

REPORT INFORMATION
  Report Type: Report from Study
  Country: None (occurrence: ES)
  Receive Date: 20200602
  Receipt Date: 20200602
  Transmission Date: 20200714
  Serious: Yes (Other)
  Sender: FDA-Public Use
  Company Number: ES-ABBVIE-20K-144-3426267-00

PATIENT
  Age: 57 Year
  Sex: Male
  Weight: 103 kg

DRUGS (4)
  1. KALETRA [Suspect]
     Active Substance: LOPINAVIR\RITONAVIR
     Indication: COVID-19
     Route: 048
     Dates: start: 20200313, end: 20200325
  2. DOLQUINE [Suspect]
     Active Substance: HYDROXYCHLOROQUINE SULFATE
     Indication: COVID-19
     Route: 048
     Dates: start: 20200313, end: 20200322
  3. CEFTRIAXONA [Suspect]
     Active Substance: CEFTRIAXONE
     Indication: COVID-19
     Route: 042
     Dates: start: 20200313, end: 20200322
  4. AZITROMICINA [Suspect]
     Active Substance: AZITHROMYCIN DIHYDRATE
     Indication: COVID-19
     Route: 042
     Dates: start: 20200313, end: 20200326

REACTIONS (2)
  - Hepatitis [Recovering/Resolving]
  - Hyperbilirubinaemia [Recovered/Resolved]

NARRATIVE: CASE EVENT DATE: 20200316
